FAERS Safety Report 7468108-4 (Version None)
Quarter: 2011Q2

REPORT INFORMATION
  Report Type: 
  Country: None (occurrence: None)
  Receive Date: 20110509
  Receipt Date: 20110325
  Transmission Date: 20111010
  Serious: No
  Sender: FDA-Public Use
  Company Number: US-ALEXION-A201100420

PATIENT

DRUGS (2)
  1. MENINGOCOCCAL VACCINE [Suspect]
     Indication: IMMUNISATION
     Dosage: UNK
     Dates: start: 20110310, end: 20110310
  2. SOLIRIS [Suspect]
     Indication: PAROXYSMAL NOCTURNAL HAEMOGLOBINURIA
     Dosage: 900 MG, Q2W
     Route: 042

REACTIONS (1)
  - PAIN IN EXTREMITY [None]
